FAERS Safety Report 9785718 (Version 3)
Quarter: 2014Q1

REPORT INFORMATION
  Report Type: Spontaneous
  Country: US (occurrence: US)
  Receive Date: 20131227
  Receipt Date: 20140207
  Transmission Date: 20141002
  Serious: Yes (Hospitalization)
  Sender: FDA-Public Use
  Company Number: US-009507513-1312USA009538

PATIENT
  Age: 59 Year
  Sex: Male

DRUGS (1)
  1. ISENTRESS [Suspect]
     Indication: HIV INFECTION
     Dosage: 400 MG, BID
     Route: 048
     Dates: start: 2010

REACTIONS (4)
  - Foot operation [Recovering/Resolving]
  - Ankle operation [Recovering/Resolving]
  - Foot fracture [Recovering/Resolving]
  - Ankle fracture [Recovering/Resolving]
